FAERS Safety Report 10508643 (Version 2)
Quarter: 2014Q4

REPORT INFORMATION
  Report Type: Spontaneous
  Country: IE (occurrence: IE)
  Receive Date: 20141009
  Receipt Date: 20141230
  Transmission Date: 20150528
  Serious: Yes (Death)
  Sender: FDA-Public Use
  Company Number: IE-SA-2014SA135348

PATIENT
  Age: 74 Year
  Sex: Female

DRUGS (2)
  1. PLAVIX [Suspect]
     Active Substance: CLOPIDOGREL BISULFATE
     Indication: ACUTE CORONARY SYNDROME
     Route: 065
  2. CLEXANE [Suspect]
     Active Substance: ENOXAPARIN SODIUM
     Indication: ACUTE CORONARY SYNDROME
     Route: 065

REACTIONS (6)
  - Condition aggravated [Unknown]
  - Headache [Unknown]
  - Vomiting [Unknown]
  - Neurological decompensation [Fatal]
  - Subdural haematoma [Fatal]
  - Haemorrhage [Fatal]

NARRATIVE: CASE EVENT DATE: 20121014
